FAERS Safety Report 8602209 (Version 2)
Quarter: 2012Q4

REPORT INFORMATION
  Report Type: Report from Study
  Country: JP (occurrence: JP)
  Receive Date: 20120607
  Receipt Date: 20120926
  Transmission Date: 20130627
  Serious: Yes (Disabling)
  Sender: FDA-Public Use
  Company Number: JP-BAYER-2012-052908

PATIENT
  Age: 41 Year
  Sex: Female
  Weight: 96 kg

DRUGS (4)
  1. LEVONORGESTREL [Suspect]
     Indication: CONTRACEPTION
     Dosage: Daily dose 20 ?g
     Route: 015
     Dates: start: 20080315, end: 20111008
  2. SOLANAX [Concomitant]
     Indication: DEPRESSION
     Dosage: UNK
     Route: 048
  3. DOGMATYL [Concomitant]
     Indication: DEPRESSION
     Route: 048
  4. HORIZON [Concomitant]
     Indication: DEPRESSION
     Route: 048

REACTIONS (2)
  - Breast cancer female [None]
  - Metrorrhagia [Recovered/Resolved]
